FAERS Safety Report 8376518-6 (Version None)
Quarter: 2012Q2

REPORT INFORMATION
  Report Type: 
  Country: None (occurrence: None)
  Receive Date: 20120522
  Receipt Date: 20120417
  Transmission Date: 20120825
  Serious: Yes (Hospitalization, Other)
  Sender: FDA-Public Use
  Company Number: US-ELI_LILLY_AND_COMPANY-US201204003162

PATIENT
  Sex: Male

DRUGS (7)
  1. LISINOPRIL [Concomitant]
     Dosage: 20 MG, BID
  2. LANTUS [Concomitant]
     Dosage: UNK
  3. HUMULIN R [Suspect]
     Indication: TYPE 1 DIABETES MELLITUS
  4. CARVEDILOL [Concomitant]
     Dosage: 25 MG, QD
  5. HYDROCHLOROTHIAZIDE [Concomitant]
     Dosage: 12.5 MG, BID
  6. VITAMIN TAB [Concomitant]
     Dosage: UNK
  7. CLARITIN [Concomitant]
     Indication: SEASONAL ALLERGY
     Dosage: UNK

REACTIONS (4)
  - CEREBROVASCULAR ACCIDENT [None]
  - THROMBOSIS [None]
  - ADVERSE EVENT [None]
  - MEMORY IMPAIRMENT [None]
